FAERS Safety Report 4617575-X (Version None)
Quarter: 2005Q1

REPORT INFORMATION
  Report Type: 
  Country: None (occurrence: None)
  Receive Date: 20050322
  Receipt Date: 20050306
  Transmission Date: 20050727
  Serious: Yes (Death, Other)
  Sender: FDA-Public Use
  Company Number: 2005042520

PATIENT
  Age: 25 Year
  Sex: Female

DRUGS (2)
  1. VORICONAZOLE (VORICONAZOLE) [Suspect]
     Indication: ANTIFUNGAL PROPHYLAXIS
     Dosage: 400 MG (200 MG, 2 IN 1 D), ORAL
     Route: 048
  2. IMMUNOSUPPRESSIVE AGENTS (IMMUNOSUPPRESSIVE AGENTS) [Concomitant]

REACTIONS (14)
  - CEREBRAL INFARCTION [None]
  - COMA [None]
  - DIARRHOEA HAEMORRHAGIC [None]
  - GASTROINTESTINAL DISORDER [None]
  - GRAFT VERSUS HOST DISEASE [None]
  - HEMIPARESIS [None]
  - MITRAL VALVE DISEASE [None]
  - NECROSIS [None]
  - NEUTROPENIA [None]
  - PORTAL VEIN OCCLUSION [None]
  - PYREXIA [None]
  - RASH MACULO-PAPULAR [None]
  - THROMBOSIS [None]
  - ZYGOMYCOSIS [None]
